FAERS Safety Report 8140636-8 (Version None)
Quarter: 2012Q1

REPORT INFORMATION
  Report Type: 
  Country: None (occurrence: None)
  Receive Date: 20120216
  Receipt Date: 20120208
  Transmission Date: 20120608
  Serious: Yes (Other)
  Sender: FDA-Public Use
  Company Number: IT-JNJFOC-20110301732

PATIENT
  Age: 60 Year
  Sex: Female

DRUGS (8)
  1. SIMPONI [Suspect]
     Indication: RHEUMATOID ARTHRITIS
     Route: 058
     Dates: start: 20101206
  2. LEVOTHYROXINE SODIUM [Concomitant]
  3. PANTOPRAZOLE SODIUM [Concomitant]
  4. TICLID [Concomitant]
  5. METHOTREXATE [Suspect]
     Indication: RHEUMATOID ARTHRITIS
     Dates: start: 20101101
  6. CHOLECALCIFEROL [Concomitant]
  7. FOLINA [Concomitant]
  8. RATACAND PLUS [Concomitant]

REACTIONS (3)
  - COUGH [None]
  - LEUKOPENIA [None]
  - PYREXIA [None]
